FAERS Safety Report 19732358 (Version 2)
Quarter: 2021Q4

REPORT INFORMATION
  Report Type: Spontaneous
  Country: JP (occurrence: JP)
  Receive Date: 20210822
  Receipt Date: 20211101
  Transmission Date: 20220303
  Serious: Yes (Hospitalization, Other)
  Sender: FDA-Public Use
  Company Number: JP-SYMBIO-202100263

PATIENT
  Age: 65 Year
  Sex: Female

DRUGS (4)
  1. BENDAMUSTINE HYDROCHLORIDE [Suspect]
     Active Substance: BENDAMUSTINE HYDROCHLORIDE
     Indication: Mantle cell lymphoma recurrent
     Dosage: (6 COURSES)
     Route: 041
  2. BENDAMUSTINE HYDROCHLORIDE [Suspect]
     Active Substance: BENDAMUSTINE HYDROCHLORIDE
     Dosage: (6 COURSES)
     Route: 041
  3. RITUXAN [Suspect]
     Active Substance: RITUXIMAB
     Indication: Mantle cell lymphoma recurrent
     Dosage: (6 COURSES)
     Route: 041
  4. RITUXAN [Suspect]
     Active Substance: RITUXIMAB
     Dosage: (6 COURSES)
     Route: 041

REACTIONS (2)
  - Diabetes mellitus [Unknown]
  - Cardiac failure [Unknown]
